FAERS Safety Report 6312632-4 (Version None)
Quarter: 2009Q3

REPORT INFORMATION
  Report Type: 
  Country: None (occurrence: None)
  Receive Date: 20090814
  Receipt Date: 20090805
  Transmission Date: 20100115
  Serious: Yes (Other)
  Sender: FDA-Public Use
  Company Number: CHPA2009US16642

PATIENT
  Age: 68 Year
  Sex: Male
  Weight: 90.2 kg

DRUGS (4)
  1. BENEFIBER W/ WHEAT DEXTRIN (NCH) (WHEAT DEXTRIN) POWDER [Suspect]
     Indication: CONSTIPATION
     Dosage: 4 TSP, BID, ORAL
     Route: 048
     Dates: start: 20090301
  2. HYDROCODONE (HYDROCODONE) [Concomitant]
  3. FLEXERIL [Concomitant]
  4. DRUG THERAPY NOS (DRUG THERAPY NOS) [Concomitant]

REACTIONS (3)
  - BLOOD URINE PRESENT [None]
  - FATIGUE [None]
  - OVERDOSE [None]
